FAERS Safety Report 4642068-3 (Version None)
Quarter: 2005Q2

REPORT INFORMATION
  Report Type: 
  Country: None (occurrence: None)
  Receive Date: 20050420
  Receipt Date: 20050401
  Transmission Date: 20051028
  Serious: Yes (Death)
  Sender: FDA-Public Use
  Company Number: GBS050417048

PATIENT
  Age: 70 Year
  Sex: Male

DRUGS (4)
  1. FLUOXETINE [Suspect]
     Indication: DEPRESSION
     Dosage: 20 MG
     Dates: start: 20041026
  2. EFFEXOR XR [Concomitant]
  3. FUROSEMIDE [Concomitant]
  4. AMIODARONE HCL [Concomitant]

REACTIONS (1)
  - COMPLETED SUICIDE [None]
